FAERS Safety Report 19390274 (Version 1)
Quarter: 2021Q2

REPORT INFORMATION
  Report Type: Spontaneous
  Country: US (occurrence: US)
  Receive Date: 20210608
  Receipt Date: 20210608
  Transmission Date: 20210717
  Serious: Yes (Hospitalization)
  Sender: FDA-Public Use
  Company Number: US-UNICHEM PHARMACEUTICALS (USA) INC-UCM202105-000498

PATIENT
  Age: 15 Year
  Sex: Female

DRUGS (1)
  1. CLONIDINE HCL [Suspect]
     Active Substance: CLONIDINE HYDROCHLORIDE
     Indication: OVERDOSE
     Dosage: 247 TABLETS OF 100 MCG

REACTIONS (6)
  - Posterior reversible encephalopathy syndrome [Recovering/Resolving]
  - Bradycardia [Recovering/Resolving]
  - Hypertension [Recovering/Resolving]
  - Mental disorder [Recovering/Resolving]
  - Overdose [Unknown]
  - Seizure [Recovering/Resolving]
